FAERS Safety Report 21350006 (Version 2)
Quarter: 2022Q3

REPORT INFORMATION
  Report Type: Spontaneous
  Country: US (occurrence: US)
  Receive Date: 20220919
  Receipt Date: 20220920
  Transmission Date: 20221026
  Serious: No
  Sender: FDA-Public Use
  Company Number: US-PFIZER INC-PV202200065326

PATIENT
  Sex: Male

DRUGS (2)
  1. RAMIPRIL [Suspect]
     Active Substance: RAMIPRIL
     Dosage: 3 CAPS
  2. RAMIPRIL [Suspect]
     Active Substance: RAMIPRIL
     Dosage: 2 CAPS

REACTIONS (2)
  - Drug ineffective [Unknown]
  - Feeling abnormal [Unknown]
